FAERS Safety Report 7599231-1 (Version None)
Quarter: 2011Q3

REPORT INFORMATION
  Report Type: 
  Country: None (occurrence: None)
  Receive Date: 20110711
  Receipt Date: 20110629
  Transmission Date: 20111222
  Serious: Yes (Other)
  Sender: FDA-Public Use
  Company Number: CA-BAYER-2011-040470

PATIENT
  Age: 19 Year
  Sex: Female
  Weight: 68.027 kg

DRUGS (1)
  1. YASMIN [Suspect]
     Indication: CONTRACEPTION
     Dosage: UNK
     Dates: start: 20091217, end: 20101109

REACTIONS (5)
  - DEEP VEIN THROMBOSIS [None]
  - CIRCULATORY COLLAPSE [None]
  - PULMONARY EMBOLISM [None]
  - THROMBOSIS [None]
  - PAIN IN EXTREMITY [None]
